FAERS Safety Report 18157858 (Version 3)
Quarter: 2022Q2

REPORT INFORMATION
  Report Type: Spontaneous
  Country: BR (occurrence: BR)
  Receive Date: 20200817
  Receipt Date: 20220628
  Transmission Date: 20220720
  Serious: Yes (Other)
  Sender: FDA-Public Use
  Company Number: BR-GSKCCFAMERS-CASE-00781557_AE-45646

PATIENT

DRUGS (5)
  1. AMOXICILLIN\CLAVULANATE POTASSIUM [Suspect]
     Active Substance: AMOXICILLIN\CLAVULANATE POTASSIUM
     Indication: Tracheitis
     Dosage: 2.5 ML, BID
     Dates: start: 20200801, end: 20200803
  2. CEFUROXIME [Suspect]
     Active Substance: CEFUROXIME
     Indication: Pneumonia
     Dosage: 2.5 ML, BID
     Dates: start: 20200803
  3. DEPAKENE [Concomitant]
     Active Substance: VALPROIC ACID
     Indication: Seizure
     Dosage: UNK
  4. BECLOMETHASONE DIPROPIONATE [Concomitant]
     Active Substance: BECLOMETHASONE DIPROPIONATE
     Indication: Product used for unknown indication
     Dosage: UNK, BID
  5. ALBUTEROL [Concomitant]
     Active Substance: ALBUTEROL
     Indication: Product used for unknown indication

REACTIONS (7)
  - Pneumonia [Recovered/Resolved]
  - Cough [Recovered/Resolved]
  - Product storage error [Unknown]
  - Product preparation issue [Unknown]
  - Product administration error [Unknown]
  - Product prescribing error [Unknown]
  - Product dose omission issue [Unknown]
